FAERS Safety Report 6541097-2 (Version None)
Quarter: 2010Q1

REPORT INFORMATION
  Report Type: 
  Country: None (occurrence: None)
  Receive Date: 20100118
  Receipt Date: 20100112
  Transmission Date: 20100710
  Serious: Yes (Other)
  Sender: FDA-Public Use
  Company Number: BE-ROCHE-679366

PATIENT
  Age: 70 Year
  Sex: Female
  Weight: 52 kg

DRUGS (10)
  1. BONIVA [Suspect]
     Indication: OSTEOPOROSIS POSTMENOPAUSAL
     Route: 048
     Dates: start: 20080501
  2. CACIT [Suspect]
     Indication: OSTEOPOROSIS POSTMENOPAUSAL
     Route: 065
     Dates: start: 20080501
  3. CACIT [Suspect]
     Dosage: DOSE LOWERED
     Route: 065
  4. ZANIDIP [Concomitant]
  5. TRIBVIT [Concomitant]
     Indication: NERVE INJURY
  6. VITALUX [Concomitant]
     Dosage: INDICATION REPORTED AS SIGHT
  7. ASAFLOW [Concomitant]
     Indication: CARDIOVASCULAR EVENT PROPHYLAXIS
  8. DUSPATALIN [Concomitant]
  9. COSE-ANAL [Concomitant]
     Indication: ANAL FISSURE
  10. DAFALGAN [Concomitant]
     Indication: ARTHRITIS

REACTIONS (1)
  - NEPHROLITHIASIS [None]
